FAERS Safety Report 5645401-9 (Version None)
Quarter: 2008Q1

REPORT INFORMATION
  Report Type: 
  Country: None (occurrence: None)
  Receive Date: 20080229
  Receipt Date: 20080227
  Transmission Date: 20080703
  Serious: Yes (Life-Threatening)
  Sender: FDA-Public Use
  Company Number: JP-BAYER-200810287BYL

PATIENT
  Age: 91 Year
  Sex: Female
  Weight: 40 kg

DRUGS (4)
  1. ASPIRIN [Suspect]
     Indication: CEREBRAL INFARCTION
     Route: 048
     Dates: start: 20071201
  2. FAMOTIDINE [Concomitant]
     Indication: GASTRIC ULCER
     Dosage: TOTAL DAILY DOSE: 10 MG
     Route: 048
     Dates: start: 20071210
  3. LACTOMIN [Concomitant]
     Indication: CONSTIPATION
     Dosage: TOTAL DAILY DOSE: 3 G
     Route: 048
     Dates: start: 20071210
  4. RADICUT [Concomitant]
     Indication: CEREBRAL INFARCTION
     Dosage: TOTAL DAILY DOSE: 30 MG
     Route: 041
     Dates: start: 20071210, end: 20071223

REACTIONS (1)
  - ANALGESIC ASTHMA SYNDROME [None]
